FAERS Safety Report 17064754 (Version 1)
Quarter: 2019Q4

REPORT INFORMATION
  Report Type: Spontaneous
  Country: US (occurrence: US)
  Receive Date: 20191122
  Receipt Date: 20191122
  Transmission Date: 20200122
  Serious: No
  Sender: FDA-Public Use
  Company Number: US-009507513-1911USA004942

PATIENT
  Age: 50 Year
  Sex: Male

DRUGS (3)
  1. NOXAFIL [Suspect]
     Active Substance: POSACONAZOLE
     Indication: SINUSITIS FUNGAL
     Dosage: UNK
  2. MICAFUNGIN. [Concomitant]
     Active Substance: MICAFUNGIN SODIUM
     Indication: SINUSITIS FUNGAL
     Dosage: UNK
  3. AMBISOME [Concomitant]
     Active Substance: AMPHOTERICIN B
     Indication: SINUSITIS FUNGAL
     Dosage: UNK

REACTIONS (1)
  - Off label use [Unknown]
